FAERS Safety Report 20778753 (Version 3)
Quarter: 2022Q2

REPORT INFORMATION
  Report Type: Spontaneous
  Country: US (occurrence: US)
  Receive Date: 20220503
  Receipt Date: 20220531
  Transmission Date: 20220721
  Serious: No
  Sender: FDA-Public Use
  Company Number: US-PFIZER INC-202200636210

PATIENT
  Age: 85 Year
  Sex: Male
  Weight: 69.4 kg

DRUGS (4)
  1. PAXLOVID [Suspect]
     Active Substance: NIRMATRELVIR\RITONAVIR
     Indication: COVID-19 treatment
     Dosage: [PF-07321332 150 MG]/[RITONAVIR 100 MG]; 2X/DAY
     Dates: start: 20220411, end: 20220416
  2. PAXLOVID [Suspect]
     Active Substance: NIRMATRELVIR\RITONAVIR
     Dosage: UNK, 2X/DAY [(300MG/100MG DOSE BID X 5 DAYS)]
     Dates: start: 20220427
  3. IMBRUVICA [Concomitant]
     Active Substance: IBRUTINIB
     Dosage: UNK
  4. IMBRUVICA [Concomitant]
     Active Substance: IBRUTINIB
     Dosage: UNK
     Dates: start: 20220417, end: 20220427

REACTIONS (4)
  - Disease recurrence [Unknown]
  - COVID-19 [Unknown]
  - Oral candidiasis [Unknown]
  - Exercise tolerance decreased [Unknown]

NARRATIVE: CASE EVENT DATE: 20220427
